FAERS Safety Report 11360730 (Version 1)
Quarter: 2015Q3

REPORT INFORMATION
  Report Type: Not Available
  Country: IN (occurrence: IN)
  Receive Date: 20150810
  Receipt Date: 20150810
  Transmission Date: 20151125
  Serious: No
  Sender: FDA-Public Use
  Company Number: IN-LUPIN PHARMACEUTICALS INC.-E2B_00002834

PATIENT
  Age: 1 Year
  Sex: Female

DRUGS (1)
  1. L-CIN [Suspect]
     Active Substance: LEVOFLOXACIN
     Indication: TYPHOID FEVER
     Route: 048
     Dates: start: 20141114

REACTIONS (2)
  - Vomiting [Not Recovered/Not Resolved]
  - Product use issue [Unknown]

NARRATIVE: CASE EVENT DATE: 20141114
